FAERS Safety Report 8055322-2 (Version None)
Quarter: 2012Q1

REPORT INFORMATION
  Report Type: 
  Country: None (occurrence: None)
  Receive Date: 20120119
  Receipt Date: 20120109
  Transmission Date: 20120608
  Serious: Yes (Hospitalization, Other)
  Sender: FDA-Public Use
  Company Number: US-BAYER-2011-038805

PATIENT
  Age: 27 Year
  Sex: Female
  Weight: 73 kg

DRUGS (4)
  1. YASMIN [Suspect]
     Indication: PRODUCT USED FOR UNKNOWN INDICATION
     Dosage: UNK
     Dates: start: 20010101
  2. BENTYL [Concomitant]
  3. ACIPHEX [Concomitant]
     Dosage: 20 MG, QD
  4. LAMICTAL [Concomitant]
     Indication: CONVULSION

REACTIONS (8)
  - ANXIETY [None]
  - ANHEDONIA [None]
  - INJURY [None]
  - GALLBLADDER INJURY [None]
  - GALLBLADDER DISORDER [None]
  - CHOLECYSTITIS ACUTE [None]
  - BILIARY COLIC [None]
  - PAIN [None]
